FAERS Safety Report 18894987 (Version 4)
Quarter: 2021Q3

REPORT INFORMATION
  Report Type: Report from Study
  Country: US (occurrence: US)
  Receive Date: 20210216
  Receipt Date: 20210719
  Transmission Date: 20211014
  Serious: No
  Sender: FDA-Public Use
  Company Number: NVSC2021US029149

PATIENT
  Age: 52 Year
  Sex: Female

DRUGS (2)
  1. COSENTYX [Suspect]
     Active Substance: SECUKINUMAB
     Indication: PSORIATIC ARTHROPATHY
     Dosage: 300 MG, OTHER (150 MG, EVERY 2 WEEKS)
     Route: 058
  2. COSENTYX [Suspect]
     Active Substance: SECUKINUMAB
     Dosage: 300 MG
     Route: 058

REACTIONS (6)
  - Pyrexia [Unknown]
  - Product prescribing error [Unknown]
  - Inappropriate schedule of product administration [Unknown]
  - Illness [Unknown]
  - Cough [Unknown]
  - Pain [Unknown]

NARRATIVE: CASE EVENT DATE: 202011
